FAERS Safety Report 6620336-3 (Version None)
Quarter: 2010Q1

REPORT INFORMATION
  Report Type: 
  Country: None (occurrence: None)
  Receive Date: 20100304
  Receipt Date: 20100218
  Transmission Date: 20100710
  Serious: Yes (Death, Hospitalization)
  Sender: FDA-Public Use
  Company Number: 2010020041

PATIENT
  Age: 51 Year
  Sex: Female
  Weight: 78.0187 kg

DRUGS (8)
  1. ONSOLIS [Suspect]
     Indication: CANCER PAIN
     Dosage: UP TO 4-200 MG (UP TO 4 FILMS PER DOSE X 4 DOSES/DAY), BU
     Route: 002
     Dates: start: 20091231
  2. MS CONTIN [Concomitant]
  3. OXYCODONE HCL [Concomitant]
  4. ACTIQ [Concomitant]
  5. FLEXERIL [Concomitant]
  6. NEURONTIN [Concomitant]
  7. NEXIUM [Concomitant]
  8. TYLENOL (CAPLET) [Concomitant]

REACTIONS (2)
  - BREAST CANCER METASTATIC [None]
  - MALIGNANT NEOPLASM PROGRESSION [None]
